FAERS Safety Report 9262384 (Version 2)
Quarter: 2013Q2

REPORT INFORMATION
  Report Type: Spontaneous
  Country: ES (occurrence: ES)
  Receive Date: 20130430
  Receipt Date: 20130503
  Transmission Date: 20140414
  Serious: Yes (Other)
  Sender: FDA-Public Use
  Company Number: ES-RANBAXY-2013RR-68098

PATIENT
  Age: 23 Year
  Sex: Female

DRUGS (5)
  1. TOPIRAMATE [Suspect]
     Indication: MIGRAINE WITH AURA
     Dosage: 50 MG, QD, AT NIGHT
     Route: 065
  2. TOPIRAMATE [Suspect]
     Indication: MIGRAINE WITH AURA
     Dosage: 25 MG, QD, AT NIGHT
     Route: 065
  3. PROPRANOLOL [Suspect]
     Indication: MIGRAINE WITH AURA
     Dosage: UNK
     Route: 065
  4. VALPROIC ACID [Suspect]
     Indication: MIGRAINE WITH AURA
     Dosage: UNK
     Route: 065
  5. ZONISAMIDE [Suspect]
     Indication: MIGRAINE WITH AURA
     Dosage: UP TO 75 MG AT NIGHT
     Route: 065

REACTIONS (1)
  - Visual impairment [Not Recovered/Not Resolved]
